FAERS Safety Report 5780791-8 (Version None)
Quarter: 2008Q2

REPORT INFORMATION
  Report Type: 
  Country: None (occurrence: None)
  Receive Date: 20080620
  Receipt Date: 20080609
  Transmission Date: 20081010
  Serious: Yes (Death, Hospitalization)
  Sender: FDA-Public Use
  Company Number: BR-PFIZER INC-2007023519

PATIENT
  Sex: Male
  Weight: 66.4 kg

DRUGS (7)
  1. SU-011,248 [Suspect]
     Indication: METASTATIC RENAL CELL CARCINOMA
     Route: 048
     Dates: start: 20060502, end: 20070314
  2. LEVOTHYROXINE SODIUM [Concomitant]
     Route: 048
  3. WARFARIN SODIUM [Concomitant]
     Route: 048
     Dates: start: 20070111
  4. AMLODIPINE [Concomitant]
     Route: 048
     Dates: start: 20020101
  5. OMEPRAZOLE [Concomitant]
     Route: 048
     Dates: start: 20061226
  6. HYDROCHLOROTHIAZIDE [Concomitant]
     Route: 048
     Dates: start: 20060921
  7. FINASTERIDE [Concomitant]
     Route: 048
     Dates: start: 20051001

REACTIONS (3)
  - ATELECTASIS [None]
  - GENERALISED OEDEMA [None]
  - RESPIRATORY FAILURE [None]
